FAERS Safety Report 4847818-9 (Version None)
Quarter: 2005Q4

REPORT INFORMATION
  Report Type: 
  Country: None (occurrence: None)
  Receive Date: 20051206
  Receipt Date: 20051012
  Transmission Date: 20060501
  Serious: Yes (Disabling)
  Sender: FDA-Public Use
  Company Number: MPS1-10451

PATIENT
  Age: 15 Year
  Sex: Female

DRUGS (1)
  1. ALDURAZYME [Suspect]
     Indication: MUCOPOLYSACCHARIDOSIS I
     Dates: start: 20050101

REACTIONS (3)
  - BLINDNESS UNILATERAL [None]
  - CHOROIDAL NEOVASCULARISATION [None]
  - RETINAL DETACHMENT [None]
